FAERS Safety Report 24584184 (Version 1)
Quarter: 2024Q4

REPORT INFORMATION
  Report Type: Report from Study
  Country: US (occurrence: US)
  Receive Date: 20241106
  Receipt Date: 20241106
  Transmission Date: 20250115
  Serious: Yes (Other)
  Sender: TAKEDA
  Company Number: US-TAKEDA-2024TUS078413

PATIENT
  Age: 52 Year
  Sex: Male

DRUGS (2)
  1. FRUQUINTINIB [Suspect]
     Active Substance: FRUQUINTINIB
     Indication: Rectal cancer
     Dosage: 5 MILLIGRAM
     Route: 048
     Dates: start: 20240801
  2. FRUQUINTINIB [Suspect]
     Active Substance: FRUQUINTINIB
     Dosage: 5 MILLIGRAM
     Route: 048
     Dates: end: 20241027

REACTIONS (5)
  - Neuropathy peripheral [Unknown]
  - Dysphonia [Not Recovered/Not Resolved]
  - Platelet count decreased [Recovered/Resolved]
  - Product dose omission issue [Unknown]
  - Blood urine present [Unknown]

NARRATIVE: CASE EVENT DATE: 20241027
